FAERS Safety Report 4409546-3 (Version None)
Quarter: 2004Q3

REPORT INFORMATION
  Report Type: 
  Country: None (occurrence: None)
  Receive Date: 20040723
  Receipt Date: 20040709
  Transmission Date: 20050211
  Serious: Yes (Hospitalization, Disabling)
  Sender: FDA-Public Use
  Company Number: 2004AP03560

PATIENT
  Age: 48 Year
  Sex: Male

DRUGS (7)
  1. IRESSA [Suspect]
     Indication: LUNG ADENOCARCINOMA
     Dosage: 250 MG DAILY PO
     Route: 048
     Dates: start: 20040503, end: 20040702
  2. IRESSA [Suspect]
     Indication: NON-SMALL CELL LUNG CANCER
     Dosage: 250 MG DAILY PO
     Route: 048
     Dates: start: 20040503, end: 20040702
  3. RANITIDINE [Concomitant]
  4. MULTIVITAMIN [Concomitant]
  5. IRON [Concomitant]
  6. ALBUTEROL SULFATE [Concomitant]
  7. STEROID [Concomitant]

REACTIONS (7)
  - AMNESIA [None]
  - BLINDNESS [None]
  - CEREBRAL DISORDER [None]
  - CONVULSION [None]
  - DEMYELINATION [None]
  - INTERSTITIAL LUNG DISEASE [None]
  - VIRAL INFECTION [None]
